FAERS Safety Report 5165831-1 (Version None)
Quarter: 2006Q4

REPORT INFORMATION
  Report Type: 
  Country: None (occurrence: None)
  Receive Date: 20061128
  Receipt Date: 20061114
  Transmission Date: 20070319
  Serious: Yes (Death, Other)
  Sender: FDA-Public Use
  Company Number: 2006US002501

PATIENT
  Sex: Male

DRUGS (9)
  1. AMBISOME [Suspect]
     Indication: BRONCHOPULMONARY ASPERGILLOSIS
     Dosage: 100 MG, UID/QD, IV DRIP
     Route: 041
     Dates: start: 20061007
  2. HEPARIN [Suspect]
     Dates: start: 20061009
  3. VFEND [Suspect]
     Dosage: ORAL
     Route: 048
     Dates: end: 20061006
  4. CEFTRIAXONE [Concomitant]
  5. CEFTAZIDIME     (CEFTAZIDIME) [Concomitant]
  6. CLINDAMYCIN [Concomitant]
  7. CIPROXAN                  (CIPROFLOXACIN HYDROCHLORIDE) [Concomitant]
  8. MINOCYCLINE HCL [Concomitant]
  9. MEROPEN                (MEROPENEM) [Concomitant]

REACTIONS (9)
  - ADENOCARCINOMA [None]
  - ALANINE AMINOTRANSFERASE INCREASED [None]
  - ASPARTATE AMINOTRANSFERASE INCREASED [None]
  - BLOOD ALKALINE PHOSPHATASE INCREASED [None]
  - BLOOD UREA INCREASED [None]
  - DISSEMINATED INTRAVASCULAR COAGULATION [None]
  - HEPATIC FUNCTION ABNORMAL [None]
  - INFECTION [None]
  - RENAL IMPAIRMENT [None]
